FAERS Safety Report 9555549 (Version 1)
Quarter: 2013Q3

REPORT INFORMATION
  Report Type: Spontaneous
  Country: US (occurrence: US)
  Receive Date: 20130926
  Receipt Date: 20130926
  Transmission Date: 20140515
  Serious: Yes (Other)
  Sender: FDA-Public Use
  Company Number: US-SANOFI-AVENTIS-2013SA094300

PATIENT
  Age: 69 Year
  Sex: Male

DRUGS (2)
  1. LANTUS SOLOSTAR [Suspect]
     Indication: TYPE 2 DIABETES MELLITUS
     Dosage: DOASAGE: 31 UNITS IN MORNING AND 33 UNITS IN EVENING
     Route: 058
  2. SOLOSTAR [Concomitant]

REACTIONS (3)
  - Cataract [Unknown]
  - Vision blurred [Unknown]
  - Renal disorder [Unknown]
